FAERS Safety Report 9931256 (Version 2)
Quarter: 2015Q1

REPORT INFORMATION
  Report Type: Report from Study
  Country: US (occurrence: US)
  Receive Date: 20140228
  Receipt Date: 20150313
  Transmission Date: 20150721
  Serious: Yes (Death)
  Sender: FDA-Public Use
  Company Number: US-ROCHE-1335123

PATIENT
  Age: 57 Year
  Sex: Female
  Weight: 54.03 kg

DRUGS (29)
  1. AVASTIN [Suspect]
     Active Substance: BEVACIZUMAB
     Indication: COLON CANCER
     Route: 042
     Dates: start: 20120911
  2. METHYLPREDNISOLONE SODIUM SUCCINATE. [Concomitant]
     Active Substance: METHYLPREDNISOLONE SODIUM SUCCINATE
     Indication: HYPERSENSITIVITY
     Route: 042
  3. METFORMIN HYDROCHLORIDE. [Concomitant]
     Active Substance: METFORMIN HYDROCHLORIDE
     Dosage: SUSTAINED RELEASE 24HR
     Route: 048
  4. PAXIL (UNITED STATES) [Concomitant]
     Route: 048
  5. MAG OXIDE [Concomitant]
     Active Substance: MAGNESIUM OXIDE
     Dosage: QID
     Route: 048
  6. DEXAMETHASONE SODIUM PHOSPHATE. [Concomitant]
     Active Substance: DEXAMETHASONE SODIUM PHOSPHATE
     Dosage: PRN, TAKE FIRST 5 DAYS S/P CHEMO
     Route: 048
  7. MORPHINE SULFATE. [Concomitant]
     Active Substance: MORPHINE SULFATE
     Route: 048
  8. XELODA [Suspect]
     Active Substance: CAPECITABINE
     Indication: LYMPHOMA
     Dosage: 500 MG TAKE 3 TWO DAILY FOR 14 DAYS, THEN OFF FOR 7 DAYS
     Route: 048
     Dates: start: 20121023
  9. HYDROCORTISONE ACETATE. [Concomitant]
     Active Substance: HYDROCORTISONE ACETATE
     Dosage: PRN
     Route: 061
  10. TRIPLE MIX - (MAALOX, BENADRYL, LIDOCAINE VISCOUS) [Concomitant]
     Dosage: 1 TEASPOON SWISH AND SWALLOW AS DIRECTED
     Route: 048
  11. XELODA [Suspect]
     Active Substance: CAPECITABINE
     Indication: COLON CANCER
     Dosage: 500 MG TAKE 3 TWO DAILY FOR 14 DAYS, THEN OFF FOR 7 DAYS
     Route: 048
     Dates: start: 20120911
  12. AVASTIN [Suspect]
     Active Substance: BEVACIZUMAB
     Indication: LYMPHOMA
     Route: 042
     Dates: start: 20121002
  13. FLUOROURACIL. [Concomitant]
     Active Substance: FLUOROURACIL
     Route: 042
  14. DEXAMETHASONE SODIUM PHOSPHATE. [Concomitant]
     Active Substance: DEXAMETHASONE SODIUM PHOSPHATE
     Route: 048
  15. DIPHENOXYLATE/ATROPINE [Concomitant]
     Active Substance: ATROPINE\DIPHENOXYLATE
     Dosage: 2.5-0.25 MG
     Route: 048
  16. TEMSIROLIMUS [Concomitant]
     Active Substance: TEMSIROLIMUS
     Route: 040
  17. DIPHENHYDRAMINE HCL [Concomitant]
     Active Substance: DIPHENHYDRAMINE HYDROCHLORIDE
     Indication: HYPERSENSITIVITY
     Route: 041
  18. HYDROCORTISONE SODIUM SUCCINATE [Concomitant]
     Active Substance: HYDROCORTISONE SODIUM SUCCINATE
     Indication: HYPERSENSITIVITY
     Route: 042
  19. OXALIPLATIN. [Concomitant]
     Active Substance: OXALIPLATIN
     Route: 042
  20. TRAMADOL [Concomitant]
     Active Substance: TRAMADOL
     Route: 048
  21. ETOPOSIDE. [Concomitant]
     Active Substance: ETOPOSIDE
     Route: 040
  22. REGLAN [Concomitant]
     Active Substance: METOCLOPRAMIDE HYDROCHLORIDE
  23. PRILOSEC [Concomitant]
     Active Substance: OMEPRAZOLE MAGNESIUM
     Dosage: TAKE BEFORE EATING
     Route: 048
  24. AVASTIN [Suspect]
     Active Substance: BEVACIZUMAB
     Route: 042
     Dates: start: 20121023
  25. AVASTIN [Suspect]
     Active Substance: BEVACIZUMAB
     Route: 042
     Dates: start: 20120124
  26. KYTRIL [Suspect]
     Active Substance: GRANISETRON HYDROCHLORIDE
     Indication: PRODUCT USED FOR UNKNOWN INDICATION
     Route: 042
  27. VECTIBIX [Concomitant]
     Active Substance: PANITUMUMAB
     Indication: COLON CANCER METASTATIC
     Route: 042
     Dates: start: 20121204, end: 20121204
  28. FLUOROURACIL. [Concomitant]
     Active Substance: FLUOROURACIL
     Dosage: CIV PUMP
     Route: 042
  29. PALONOSETRON HYDROCHLORIDE [Concomitant]
     Active Substance: PALONOSETRON HYDROCHLORIDE
     Route: 065

REACTIONS (17)
  - Nausea [Not Recovered/Not Resolved]
  - Abdominal tenderness [Unknown]
  - Decreased appetite [Unknown]
  - Fistula discharge [Not Recovered/Not Resolved]
  - Acne [Unknown]
  - Abdominal pain [Unknown]
  - Weight decreased [Not Recovered/Not Resolved]
  - Fatigue [Unknown]
  - Platelet count increased [Unknown]
  - Pain [Unknown]
  - Vomiting [Not Recovered/Not Resolved]
  - Asthenia [Not Recovered/Not Resolved]
  - Disease progression [Fatal]
  - Iron deficiency anaemia [Not Recovered/Not Resolved]
  - Mucosal inflammation [Not Recovered/Not Resolved]
  - Haemorrhage [Unknown]
  - White blood cell count increased [Unknown]

NARRATIVE: CASE EVENT DATE: 201209
